FAERS Safety Report 12556212 (Version 4)
Quarter: 2016Q4

REPORT INFORMATION
  Report Type: Spontaneous
  Country: GB (occurrence: GB)
  Receive Date: 20160714
  Receipt Date: 20161110
  Transmission Date: 20170207
  Serious: Yes (Hospitalization, Other)
  Sender: FDA-Public Use
  Company Number: GB-PFIZER INC-2016333374

PATIENT
  Age: 89 Year
  Sex: Female

DRUGS (4)
  1. OMEPRAZOLE. [Suspect]
     Active Substance: OMEPRAZOLE
     Dosage: 20 MG, DAILY
     Route: 048
     Dates: end: 20160521
  2. SPIRONOLACTONE. [Suspect]
     Active Substance: SPIRONOLACTONE
     Dosage: 25 MG, DAILY
     Route: 048
     Dates: end: 20160521
  3. RAMIPRIL. [Suspect]
     Active Substance: RAMIPRIL
     Dosage: 5 MG, 2X/DAY
     Route: 048
     Dates: end: 20160521
  4. AMITRIPTYLINE [Concomitant]
     Active Substance: AMITRIPTYLINE
     Dosage: 25 MG, 1X/DAY
     Route: 048

REACTIONS (5)
  - Acute kidney injury [Recovered/Resolved]
  - Mucosal dryness [Unknown]
  - Circulatory collapse [Unknown]
  - Viral diarrhoea [Recovered/Resolved]
  - Abdominal tenderness [Unknown]

NARRATIVE: CASE EVENT DATE: 20160521
